FAERS Safety Report 9957647 (Version 1)
Quarter: 2014Q1

REPORT INFORMATION
  Report Type: Report from Study
  Country: US (occurrence: US)
  Receive Date: 20140304
  Receipt Date: 20140304
  Transmission Date: 20141002
  Serious: No
  Sender: FDA-Public Use
  Company Number: US-ABBVIE-13P-163-1093574-00

PATIENT
  Age: 53 Year
  Sex: Male

DRUGS (10)
  1. HUMIRA [Suspect]
     Indication: CROHN^S DISEASE
     Dates: start: 201301
  2. METFORMIN [Concomitant]
     Indication: DIABETES MELLITUS
  3. ONGLYZA [Concomitant]
     Indication: DIABETES MELLITUS
     Dosage: 2.5MG DAILY
  4. PROVASTADIN [Concomitant]
     Indication: HYPERTENSION
     Dosage: 10MG 1/2 DAILY
  5. AMLODIPINE [Concomitant]
     Indication: HYPERTENSION
     Dosage: 2.5MG DAILY
  6. GEMFIBROZIL [Concomitant]
     Indication: BLOOD CHOLESTEROL INCREASED
     Dosage: 600MG DAILY
  7. PENTASA [Concomitant]
     Indication: CROHN^S DISEASE
  8. SERTRALINE [Concomitant]
     Indication: DEPRESSION
     Dosage: 50MG DAILY
  9. RAMIPRIL [Concomitant]
     Indication: HYPERTENSION
     Dosage: 10MG DAILY
  10. GENERIC PREVACID [Concomitant]
     Indication: GASTROOESOPHAGEAL REFLUX DISEASE
     Dosage: 10MG DAILY

REACTIONS (1)
  - Alopecia [Not Recovered/Not Resolved]
